FAERS Safety Report 12597765 (Version 1)
Quarter: 2016Q3

REPORT INFORMATION
  Report Type: Spontaneous
  Country: US (occurrence: US)
  Receive Date: 20160727
  Receipt Date: 20160727
  Transmission Date: 20161109
  Serious: No
  Sender: FDA-Public Use
  Company Number: US-PFIZER INC-2016352240

PATIENT
  Age: 63 Year
  Sex: Male
  Weight: 100 kg

DRUGS (1)
  1. EFFEXOR XR [Suspect]
     Active Substance: VENLAFAXINE HYDROCHLORIDE
     Indication: PANIC ATTACK
     Dosage: 75+37.5 MG, 1X/DAY
     Dates: start: 20160624, end: 20160708

REACTIONS (3)
  - Insomnia [Recovered/Resolved]
  - Feeling abnormal [Unknown]
  - Product quality issue [Unknown]

NARRATIVE: CASE EVENT DATE: 20160624
